FAERS Safety Report 7419165-2 (Version None)
Quarter: 2011Q2

REPORT INFORMATION
  Report Type: 
  Country: None (occurrence: None)
  Receive Date: 20110415
  Receipt Date: 20110403
  Transmission Date: 20111010
  Serious: Yes (Death)
  Sender: FDA-Public Use
  Company Number: LB-GENENTECH-305851

PATIENT
  Age: 52 Year
  Sex: Female

DRUGS (1)
  1. MABTHERA [Suspect]
     Indication: POLYMYOSITIS
     Dosage: 1000 MG, Q2W
     Route: 042
     Dates: start: 20090309, end: 20090407

REACTIONS (1)
  - LUNG ADENOCARCINOMA [None]
